FAERS Safety Report 19283660 (Version 1)
Quarter: 2021Q2

REPORT INFORMATION
  Report Type: Spontaneous
  Country: FR (occurrence: FR)
  Receive Date: 20210521
  Receipt Date: 20210521
  Transmission Date: 20210717
  Serious: Yes (Death, Hospitalization)
  Sender: FDA-Public Use
  Company Number: FR-TEVA-2021-FR-1914808

PATIENT
  Age: 67 Year
  Sex: Male

DRUGS (2)
  1. DURVALUMAB. [Suspect]
     Active Substance: DURVALUMAB
     Indication: METASTATIC BRONCHIAL CARCINOMA
     Dosage: RECEIVED SINGLE INFUSION
     Route: 050
  2. TENOFOVIR [Suspect]
     Active Substance: TENOFOVIR
     Indication: HEPATITIS B REACTIVATION
     Dosage: 245 MILLIGRAM DAILY;
     Route: 065

REACTIONS (6)
  - Peritonitis [Fatal]
  - Drug ineffective [Unknown]
  - Acute kidney injury [Fatal]
  - Hepatitis B reactivation [Fatal]
  - Sepsis [Fatal]
  - Multiple organ dysfunction syndrome [Fatal]
